FAERS Safety Report 13585562 (Version 1)
Quarter: 2017Q2

REPORT INFORMATION
  Report Type: Spontaneous
  Country: US (occurrence: US)
  Receive Date: 20170526
  Receipt Date: 20170526
  Transmission Date: 20170830
  Serious: No
  Sender: FDA-Public Use
  Company Number: US-WEST-WARD PHARMACEUTICALS CORP.-US-H14001-16-03056

PATIENT
  Age: 64 Year
  Sex: Male
  Weight: 88.53 kg

DRUGS (5)
  1. LIDOCAINE. [Suspect]
     Active Substance: LIDOCAINE
     Indication: ORAL PAIN
     Route: 048
     Dates: start: 2016, end: 2016
  2. CHEMOTHERAPEUTICS [Concomitant]
     Active Substance: UNSPECIFIED INGREDIENT
     Indication: LYMPHOMA
     Route: 065
  3. METHADONE [Concomitant]
     Active Substance: METHADONE HYDROCHLORIDE
     Indication: PRODUCT USED FOR UNKNOWN INDICATION
     Route: 065
  4. NEUPOGEN [Concomitant]
     Active Substance: FILGRASTIM
     Indication: PRODUCT USED FOR UNKNOWN INDICATION
     Route: 065
  5. RITUXAN [Concomitant]
     Active Substance: RITUXIMAB
     Indication: PRODUCT USED FOR UNKNOWN INDICATION
     Route: 065
     Dates: end: 2016

REACTIONS (3)
  - Incorrect route of drug administration [Recovered/Resolved]
  - Expired product administered [Recovered/Resolved]
  - Drug screen false positive [Unknown]

NARRATIVE: CASE EVENT DATE: 201611
